FAERS Safety Report 10220022 (Version 2)
Quarter: 2014Q2

REPORT INFORMATION
  Report Type: Report from Study
  Country: CA (occurrence: CA)
  Receive Date: 20140605
  Receipt Date: 20140630
  Transmission Date: 20141212
  Serious: Yes (Other)
  Sender: FDA-Public Use
  Company Number: CA-JNJFOC-20140519772

PATIENT
  Sex: Female
  Weight: 57.3 kg

DRUGS (8)
  1. REMICADE [Suspect]
     Indication: CROHN^S DISEASE
     Dosage: 61ST INFUSION
     Route: 042
     Dates: start: 20140623
  2. REMICADE [Suspect]
     Indication: CROHN^S DISEASE
     Dosage: DOSE 300 OR 400 MG
     Route: 042
     Dates: start: 20090210
  3. CALCIUM [Concomitant]
     Route: 065
  4. VITAMIN D [Concomitant]
     Route: 065
  5. MAXERAN [Concomitant]
     Route: 065
  6. ZOLOFT [Concomitant]
     Route: 065
  7. BENADRYL [Concomitant]
     Indication: PREMEDICATION
     Route: 042
     Dates: start: 20140623
  8. SOLU CORTEF [Concomitant]
     Indication: PREMEDICATION
     Route: 042
     Dates: start: 20140623

REACTIONS (1)
  - Thyroid mass [Unknown]
